FAERS Safety Report 11829369 (Version 1)
Quarter: 2015Q4

REPORT INFORMATION
  Report Type: Report from Study
  Country: US (occurrence: US)
  Receive Date: 20151211
  Receipt Date: 20151211
  Transmission Date: 20160305
  Serious: Yes (Hospitalization, Other)
  Sender: FDA-Public Use
  Company Number: US-BAXALTA-2015BLT003149

PATIENT
  Age: 46 Year
  Sex: Female

DRUGS (1)
  1. GAMMAGARD LIQUID [Suspect]
     Active Substance: HUMAN IMMUNOGLOBULIN G
     Indication: IMMUNODEFICIENCY COMMON VARIABLE
     Dosage: UNK
     Route: 058
     Dates: start: 201407

REACTIONS (8)
  - Rib fracture [Unknown]
  - Urinary tract infection [Unknown]
  - Asthma [Unknown]
  - Drug dose omission [Unknown]
  - Muscle spasms [Unknown]
  - Cough [Unknown]
  - Blood pressure abnormal [Unknown]
  - Pyrexia [Unknown]

NARRATIVE: CASE EVENT DATE: 201508
